FAERS Safety Report 6621551-5 (Version None)
Quarter: 2010Q1

REPORT INFORMATION
  Report Type: 
  Country: None (occurrence: None)
  Receive Date: 20100309
  Receipt Date: 20100224
  Transmission Date: 20100710
  Serious: Yes (Life-Threatening, Hospitalization, Disabling)
  Sender: FDA-Public Use
  Company Number: JP-AMGEN-US347147

PATIENT
  Sex: Male
  Weight: 80 kg

DRUGS (7)
  1. ENBREL [Suspect]
     Indication: RHEUMATOID ARTHRITIS
     Route: 058
     Dates: start: 20080803, end: 20090407
  2. ENBREL [Suspect]
     Dosage: PREVIOUSLY ON LYOPHILIZED 25 MG TWICE WEEKLY
     Route: 058
     Dates: start: 20070801
  3. RHEUMATREX [Suspect]
     Indication: RHEUMATOID ARTHRITIS
     Route: 048
     Dates: start: 20051111, end: 20090407
  4. VOLTAREN [Concomitant]
     Dosage: UNSPECIFIED
     Route: 054
  5. ISCOTIN [Concomitant]
     Indication: INFECTION PROPHYLAXIS
     Route: 048
     Dates: start: 20070803, end: 20090407
  6. FELBINAC [Concomitant]
     Indication: RHEUMATOID ARTHRITIS
     Dosage: UNSPECIFIED DOSE TAP
  7. URINORM [Concomitant]
     Indication: HYPERURICAEMIA
     Route: 048
     Dates: start: 20020101, end: 20090417

REACTIONS (7)
  - INTERSTITIAL LUNG DISEASE [None]
  - INTERVERTEBRAL DISCITIS [None]
  - MENINGOENCEPHALITIS BACTERIAL [None]
  - PAIN IN EXTREMITY [None]
  - PNEUMOCOCCAL INFECTION [None]
  - STAPHYLOCOCCAL INFECTION [None]
  - STREPTOCOCCAL INFECTION [None]
